FAERS Safety Report 6085335-1 (Version None)
Quarter: 2009Q1

REPORT INFORMATION
  Report Type: 
  Country: None (occurrence: None)
  Receive Date: 20090220
  Receipt Date: 20090210
  Transmission Date: 20090719
  Serious: Yes (Hospitalization)
  Sender: FDA-Public Use
  Company Number: FR-PFIZER INC-2009169041

PATIENT

DRUGS (8)
  1. AZADOSE [Suspect]
     Indication: OPPORTUNISTIC INFECTION
     Route: 048
     Dates: start: 20080401
  2. PENTAMIDINE ISETHIONATE [Suspect]
     Indication: OPPORTUNISTIC INFECTION
     Dosage: UNK
     Dates: start: 20080414
  3. MALOCIDE [Suspect]
     Indication: OPPORTUNISTIC INFECTION
     Dosage: UNK
     Route: 048
     Dates: start: 20080401
  4. SPECIAFOLDINE [Suspect]
     Indication: OPPORTUNISTIC INFECTION
     Dosage: UNK
     Route: 048
     Dates: start: 20080401
  5. TRUVADA [Suspect]
     Indication: ACQUIRED IMMUNODEFICIENCY SYNDROME
     Dosage: UNK
     Route: 048
     Dates: start: 20080505
  6. KALETRA [Suspect]
     Indication: ACQUIRED IMMUNODEFICIENCY SYNDROME
     Dosage: UNK
     Route: 048
     Dates: start: 20080505
  7. FUZEON [Suspect]
     Dosage: UNK
     Route: 058
     Dates: start: 20080505
  8. BACTRIM [Suspect]
     Dosage: UNK
     Route: 048
     Dates: start: 20080404, end: 20080414

REACTIONS (1)
  - ACUTE FEBRILE NEUTROPHILIC DERMATOSIS [None]
